FAERS Safety Report 8460137-7 (Version None)
Quarter: 2012Q2

REPORT INFORMATION
  Report Type: 
  Country: None (occurrence: None)
  Receive Date: 20120323
  Receipt Date: 20111012
  Transmission Date: 20120825
  Serious: Yes (Disabling)
  Sender: FDA-Public Use
  Company Number: 163-21880-11101562

PATIENT
  Age: 70 Year
  Sex: Female

DRUGS (9)
  1. VELCADE [Concomitant]
  2. REVLIMID [Suspect]
     Indication: MULTIPLE MYELOMA
     Dosage: 25 MG, DAILY 2WKS ON, PO ; 15 MG, DAILY 2WKS ON, PO
     Route: 048
     Dates: start: 20110825, end: 20110909
  3. REVLIMID [Suspect]
     Indication: MULTIPLE MYELOMA
     Dosage: 25 MG, DAILY 2WKS ON, PO ; 15 MG, DAILY 2WKS ON, PO
     Route: 048
     Dates: start: 20110803, end: 20110809
  4. DECADRON [Concomitant]
  5. ASA (ACETYLSALICYILIC ACID) [Concomitant]
  6. ZOCOR (SIMVASTATNI) [Concomitant]
  7. ACYCLOVIR [Concomitant]
  8. PAMIDRONATE DISODIUM [Concomitant]
  9. BACTRIM [Concomitant]

REACTIONS (1)
  - TREMOR [None]
